FAERS Safety Report 8552417-1 (Version None)
Quarter: 2012Q3

REPORT INFORMATION
  Report Type: 
  Country: None (occurrence: None)
  Receive Date: 20120724
  Receipt Date: 20120724
  Transmission Date: 20120928
  Serious: Yes (Life-Threatening, Hospitalization, Disabling, Other)
  Sender: FDA-Public Use
  Company Number: None

PATIENT
  Sex: Female
  Weight: 45.3597 kg

DRUGS (2)
  1. FENTANYL CITRATE [Suspect]
     Indication: LITHOTRIPSY
     Dosage: 50MCG 25MCG 25MCG 3 TIMES IV PUSH
     Route: 042
     Dates: start: 20120402
  2. CLINDAMYCIN HCL [Suspect]
     Indication: LITHOTRIPSY
     Dosage: 600 MG ONCE IV
     Route: 042
     Dates: start: 20120402

REACTIONS (8)
  - VISION BLURRED [None]
  - PAIN [None]
  - ARTHRALGIA [None]
  - DYSPNOEA [None]
  - ABASIA [None]
  - NAUSEA [None]
  - URTICARIA [None]
  - BLISTER [None]
